FAERS Safety Report 9842637 (Version 2)
Quarter: 2014Q1

REPORT INFORMATION
  Report Type: Report from Study
  Country: US (occurrence: US)
  Receive Date: 20140124
  Receipt Date: 20140227
  Transmission Date: 20141002
  Serious: Yes (Hospitalization)
  Sender: FDA-Public Use
  Company Number: US-ACTELION-A-US2014-93958

PATIENT
  Age: 71 Year
  Sex: Male

DRUGS (2)
  1. MACITENTAN [Suspect]
     Indication: PULMONARY ARTERIAL HYPERTENSION
     Dosage: 10 MG, QD
     Route: 048
  2. COUMADIN [Concomitant]

REACTIONS (6)
  - Blood iron decreased [Unknown]
  - Oedema [Unknown]
  - Fluid retention [Unknown]
  - Transfusion reaction [Unknown]
  - Malaise [Unknown]
  - Weight increased [Unknown]
